FAERS Safety Report 15115303 (Version 4)
Quarter: 2020Q1

REPORT INFORMATION
  Report Type: Spontaneous
  Country: JP (occurrence: JP)
  Receive Date: 20180706
  Receipt Date: 20200131
  Transmission Date: 20200409
  Serious: Yes (Hospitalization, Other)
  Sender: FDA-Public Use
  Company Number: JP-IPSEN BIOPHARMACEUTICALS, INC.-2018-09832

PATIENT
  Age: 68 Year
  Sex: Male

DRUGS (7)
  1. SUTENT [Concomitant]
     Active Substance: SUNITINIB MALATE
     Indication: PANCREATIC NEUROENDOCRINE TUMOUR
     Dates: start: 20180430, end: 20181207
  2. LIPACREON [Concomitant]
     Active Substance: PANCRELIPASE
     Indication: PANCREATIC FAILURE
  3. AMLODIPINE [Concomitant]
     Active Substance: AMLODIPINE BESYLATE
     Indication: HYPERTENSION
  4. NEXIUM [Concomitant]
     Active Substance: ESOMEPRAZOLE MAGNESIUM
     Indication: GASTROOESOPHAGEAL REFLUX DISEASE
  5. HARNAL [Concomitant]
     Active Substance: TAMSULOSIN HYDROCHLORIDE
     Indication: BENIGN PROSTATIC HYPERPLASIA
     Dates: end: 20181212
  6. AFINITOR [Concomitant]
     Active Substance: EVEROLIMUS
     Indication: PANCREATIC NEUROENDOCRINE TUMOUR
     Dates: start: 20190115
  7. SOMATULINE [Suspect]
     Active Substance: LANREOTIDE ACETATE
     Indication: PANCREATIC NEUROENDOCRINE TUMOUR
     Dosage: 120 MG
     Route: 058
     Dates: start: 20180428

REACTIONS (12)
  - Cholangitis [Recovering/Resolving]
  - Cholangitis [Recovering/Resolving]
  - Constipation [Recovering/Resolving]
  - Metastases to spine [Recovering/Resolving]
  - Haemobilia [Recovering/Resolving]
  - Diabetes mellitus [Recovering/Resolving]
  - Cancer pain [Recovering/Resolving]
  - Humerus fracture [Recovering/Resolving]
  - Cancer pain [Recovering/Resolving]
  - Diabetes mellitus [Recovering/Resolving]
  - Abdominal pain [Recovered/Resolved]
  - Cholangitis [Recovered/Resolved]

NARRATIVE: CASE EVENT DATE: 20180428
